FAERS Safety Report 5835368-2 (Version None)
Quarter: 2008Q3

REPORT INFORMATION
  Report Type: 
  Country: None (occurrence: None)
  Receive Date: 20080806
  Receipt Date: 20080731
  Transmission Date: 20090109
  Serious: Yes (Disabling)
  Sender: FDA-Public Use
  Company Number: US-MERCK-0808USA00333

PATIENT

DRUGS (2)
  1. SINGULAIR [Suspect]
     Indication: ASTHMA
     Route: 048
     Dates: start: 20070101, end: 20070101
  2. SINGULAIR [Suspect]
     Indication: HYPERSENSITIVITY
     Route: 048
     Dates: start: 20070101, end: 20070101

REACTIONS (4)
  - ASTHENIA [None]
  - ASTHMA [None]
  - INFLUENZA LIKE ILLNESS [None]
  - PAIN [None]
